FAERS Safety Report 7352640-8 (Version None)
Quarter: 2011Q1

REPORT INFORMATION
  Report Type: 
  Country: None (occurrence: None)
  Receive Date: 20110315
  Receipt Date: 20110223
  Transmission Date: 20110831
  Serious: Yes (Other)
  Sender: FDA-Public Use
  Company Number: US-BAYER-200934660NA

PATIENT
  Sex: Male
  Weight: 118.37 kg

DRUGS (3)
  1. TRASYLOL [Suspect]
     Indication: CARDIAC OPERATION
     Dosage: UNK
     Route: 042
     Dates: start: 20050401
  2. TRASYLOL [Suspect]
     Indication: HEART VALVE REPLACEMENT
  3. IBUPROFEN [Concomitant]
     Indication: LIGAMENT RUPTURE

REACTIONS (8)
  - ANXIETY [None]
  - DEPRESSION [None]
  - RENAL FAILURE [None]
  - PAIN [None]
  - ANHEDONIA [None]
  - INJURY [None]
  - UNEVALUABLE EVENT [None]
  - FEAR [None]
